FAERS Safety Report 11648195 (Version 13)
Quarter: 2018Q1

REPORT INFORMATION
  Report Type: Report from Study
  Country: US (occurrence: US)
  Receive Date: 20151021
  Receipt Date: 20180104
  Transmission Date: 20180508
  Serious: Yes (Hospitalization, Other)
  Sender: FDA-Public Use
  Company Number: US-JNJFOC-20151004114

PATIENT
  Age: 59 Year
  Sex: Male

DRUGS (22)
  1. PREDNISONE. [Concomitant]
     Active Substance: PREDNISONE
     Indication: WALDENSTROM^S MACROGLOBULINAEMIA
     Route: 048
     Dates: start: 20150513
  2. AMOXIL [Concomitant]
     Active Substance: AMOXICILLIN
  3. ALLOPURINOL. [Concomitant]
     Active Substance: ALLOPURINOL
  4. TAMSULOSIN HYDROCHLORIDE. [Concomitant]
     Active Substance: TAMSULOSIN HYDROCHLORIDE
  5. IMBRUVICA [Suspect]
     Active Substance: IBRUTINIB
     Indication: WALDENSTROM^S MACROGLOBULINAEMIA
     Route: 048
     Dates: end: 2016
  6. IMBRUVICA [Suspect]
     Active Substance: IBRUTINIB
     Indication: WALDENSTROM^S MACROGLOBULINAEMIA
     Route: 048
     Dates: start: 20160413
  7. DIFLUCAN [Interacting]
     Active Substance: FLUCONAZOLE
     Indication: PNEUMONIA CRYPTOCOCCAL
  8. CLOBETASOL [Concomitant]
     Active Substance: CLOBETASOL
  9. ATARAX [Concomitant]
     Active Substance: HYDROXYZINE HYDROCHLORIDE
  10. LACTOBACILLUS ACIDOPHILUS [Concomitant]
     Active Substance: LACTOBACILLUS ACIDOPHILUS
  11. KETOCONAZOLE. [Concomitant]
     Active Substance: KETOCONAZOLE
  12. IMBRUVICA [Suspect]
     Active Substance: IBRUTINIB
     Indication: WALDENSTROM^S MACROGLOBULINAEMIA
     Route: 048
     Dates: start: 20150513, end: 20150921
  13. SINGULAIR [Concomitant]
     Active Substance: MONTELUKAST SODIUM
  14. LOSARTAN. [Concomitant]
     Active Substance: LOSARTAN
  15. IMBRUVICA [Suspect]
     Active Substance: IBRUTINIB
     Indication: WALDENSTROM^S MACROGLOBULINAEMIA
     Route: 048
     Dates: start: 20160908
  16. CITALOPRAM [Concomitant]
     Active Substance: CITALOPRAM HYDROBROMIDE
  17. PEPCID [Concomitant]
     Active Substance: FAMOTIDINE
  18. ALLEGRA [Concomitant]
     Active Substance: FEXOFENADINE HYDROCHLORIDE
  19. COLCHICINE. [Concomitant]
     Active Substance: COLCHICINE
  20. IMBRUVICA [Suspect]
     Active Substance: IBRUTINIB
     Indication: WALDENSTROM^S MACROGLOBULINAEMIA
     Route: 048
     Dates: start: 20160303
  21. IMBRUVICA [Suspect]
     Active Substance: IBRUTINIB
     Indication: WALDENSTROM^S MACROGLOBULINAEMIA
     Route: 048
     Dates: start: 20160123
  22. CELEXA [Concomitant]
     Active Substance: CITALOPRAM HYDROBROMIDE

REACTIONS (14)
  - Diarrhoea [Unknown]
  - Oedema [Unknown]
  - Blood pressure increased [Unknown]
  - Umbilical hernia [Unknown]
  - Cryptococcal fungaemia [Recovering/Resolving]
  - Drug interaction [Unknown]
  - Pneumonia cryptococcal [Recovered/Resolved]
  - Petechiae [Recovering/Resolving]
  - Chondrocalcinosis pyrophosphate [Recovering/Resolving]
  - Lipoma [Not Recovered/Not Resolved]
  - Lung infiltration [Recovered/Resolved]
  - Arthralgia [Unknown]
  - Blood testosterone decreased [Unknown]
  - Prostatic specific antigen increased [Unknown]

NARRATIVE: CASE EVENT DATE: 201509
